FAERS Safety Report 20546002 (Version 3)
Quarter: 2022Q3

REPORT INFORMATION
  Report Type: Spontaneous
  Country: JP (occurrence: JP)
  Receive Date: 20220303
  Receipt Date: 20220715
  Transmission Date: 20221027
  Serious: No
  Sender: FDA-Public Use
  Company Number: JP-GLAXOSMITHKLINE-JP2022JPN037398

PATIENT

DRUGS (8)
  1. SOTROVIMAB [Suspect]
     Active Substance: SOTROVIMAB
     Indication: COVID-19
     Dosage: UNK
     Dates: start: 20220224
  2. FLUTICASONE PROPIONATE [Suspect]
     Active Substance: FLUTICASONE PROPIONATE
     Indication: Rhinitis
     Dosage: UNK
     Route: 045
     Dates: start: 20220301, end: 20220302
  3. AMBROXOL [Suspect]
     Active Substance: AMBROXOL
     Indication: Productive cough
     Dosage: 45 MG/DAY
     Dates: start: 20220301, end: 20220302
  4. HERBALS [Suspect]
     Active Substance: HERBALS
     Indication: Rhinitis
     Dosage: 9 G/DAY
     Dates: end: 20220302
  5. CARBOCYSTEINE [Suspect]
     Active Substance: CARBOCYSTEINE
     Indication: Productive cough
     Dosage: 1500 MG/DAY
     Dates: start: 20220224, end: 20220302
  6. DEXTROMETHORPHAN HYDROBROMIDE [Suspect]
     Active Substance: DEXTROMETHORPHAN HYDROBROMIDE
     Indication: Cough
     Dosage: 4.5 MG/DAY
     Dates: start: 20220224, end: 20220302
  7. DEQUALINIUM CHLORIDE [Suspect]
     Active Substance: DEQUALINIUM CHLORIDE
     Dosage: 1.5 MG/DAY
     Dates: start: 20220223, end: 20220302
  8. CALONAL [Suspect]
     Active Substance: ACETAMINOPHEN
     Indication: Pyrexia
     Dosage: 400 MG/DAY
     Dates: start: 20220223, end: 20220223

REACTIONS (1)
  - Exposure during pregnancy [Unknown]
